FAERS Safety Report 11823032 (Version 2)
Quarter: 2016Q1

REPORT INFORMATION
  Report Type: Report from Study
  Country: US (occurrence: US)
  Receive Date: 20151210
  Receipt Date: 20160104
  Transmission Date: 20160525
  Serious: Yes (Other)
  Sender: FDA-Public Use
  Company Number: US-GILEAD-2015-0187498

PATIENT
  Age: 47 Year
  Sex: Female

DRUGS (2)
  1. TYVASO [Suspect]
     Active Substance: TREPROSTINIL
     Indication: PRODUCT USED FOR UNKNOWN INDICATION
     Dosage: UNK
     Route: 065
  2. AMBRISENTAN [Suspect]
     Active Substance: AMBRISENTAN
     Indication: PRODUCT USED FOR UNKNOWN INDICATION
     Dosage: 10 MG, QD
     Route: 065
     Dates: start: 20111220

REACTIONS (6)
  - Eye pain [Not Recovered/Not Resolved]
  - Pain [Not Recovered/Not Resolved]
  - Nasal discomfort [Not Recovered/Not Resolved]
  - Lower respiratory tract congestion [Unknown]
  - Pyrexia [Not Recovered/Not Resolved]
  - Nasal congestion [Unknown]
